FAERS Safety Report 9988730 (Version 2)
Quarter: 2013Q4

REPORT INFORMATION
  Report Type: Spontaneous
  Country: US (occurrence: None)
  Receive Date: 20131015
  Receipt Date: 20131030
  Transmission Date: 20140711
  Serious: Yes (Hospitalization, Other)
  Sender: FDA-Public Use
  Company Number: 2013038364

PATIENT
  Age: 9 Year
  Sex: Female
  Weight: 23.13 kg

DRUGS (1)
  1. HIZENTRA [Suspect]
     Indication: IMMUNODEFICIENCY
     Dates: start: 20110409

REACTIONS (6)
  - Rash [None]
  - Hypersensitivity [None]
  - Arthropod bite [None]
  - Skin warm [None]
  - Erythema [None]
  - Mass [None]
